FAERS Safety Report 23269003 (Version 2)
Quarter: 2024Q1

REPORT INFORMATION
  Report Type: Report from Study
  Country: US (occurrence: US)
  Receive Date: 20231206
  Receipt Date: 20240215
  Transmission Date: 20240409
  Serious: Yes (Other)
  Sender: FDA-Public Use
  Company Number: US-ABBVIE-5524650

PATIENT
  Age: 65 Year
  Sex: Female

DRUGS (6)
  1. RINVOQ [Suspect]
     Active Substance: UPADACITINIB
     Indication: Dermatitis atopic
     Route: 048
     Dates: start: 20221109, end: 20231101
  2. OPZELURA [Concomitant]
     Active Substance: RUXOLITINIB PHOSPHATE
     Indication: Dermatitis atopic
     Dosage: 1.5 PERCENT
     Route: 061
     Dates: start: 20220923
  3. HYDROQUINONE;TRETINOIN [Concomitant]
     Indication: Lentigo
     Dosage: FORM STRENGTH: 5/0.025 PERCENT
     Route: 061
  4. NYSTATIN [Concomitant]
     Active Substance: NYSTATIN
     Indication: Dermatitis atopic
     Dosage: DOSE: 1000000 MICROGRAM
     Route: 061
     Dates: start: 20220923
  5. CLOBETASOL [Concomitant]
     Active Substance: CLOBETASOL
     Indication: Dermatitis atopic
     Dosage: FORM STRENGTH: 0.05 PERCENT
     Route: 061
  6. TACROLIMUS [Concomitant]
     Active Substance: TACROLIMUS
     Indication: Dermatitis atopic
     Dosage: FORM STRENGTH: 0.1 PERCENT
     Route: 061

REACTIONS (3)
  - Renal cancer [Not Recovered/Not Resolved]
  - Low density lipoprotein increased [Unknown]
  - Blood cholesterol increased [Unknown]

NARRATIVE: CASE EVENT DATE: 20221220
